FAERS Safety Report 20805373 (Version 1)
Quarter: 2022Q2

REPORT INFORMATION
  Report Type: Spontaneous
  Country: GB (occurrence: GB)
  Receive Date: 20220510
  Receipt Date: 20220510
  Transmission Date: 20220721
  Serious: Yes (Other)
  Sender: FDA-Public Use
  Company Number: GB-SUN PHARMACEUTICAL INDUSTRIES LTD-2022RR-336031

PATIENT
  Age: 58 Year
  Sex: Female

DRUGS (8)
  1. OXALIPLATIN [Suspect]
     Active Substance: OXALIPLATIN
     Indication: Gallbladder cancer stage IV
     Dosage: UNK
     Route: 065
     Dates: start: 201909, end: 202003
  2. OXALIPLATIN [Suspect]
     Active Substance: OXALIPLATIN
     Dosage: UNK
     Route: 065
     Dates: start: 202008
  3. GEMCITABINE [Suspect]
     Active Substance: GEMCITABINE
     Indication: Gallbladder cancer stage IV
     Dosage: UNK
     Route: 065
     Dates: start: 201905
  4. LEUCOVORIN CALCIUM [Suspect]
     Active Substance: LEUCOVORIN CALCIUM
     Indication: Gallbladder cancer stage IV
     Dosage: UNK
     Route: 065
     Dates: start: 201909, end: 202203
  5. LEUCOVORIN CALCIUM [Suspect]
     Active Substance: LEUCOVORIN CALCIUM
     Dosage: UNK
     Route: 065
     Dates: start: 202008
  6. CISPLATIN [Suspect]
     Active Substance: CISPLATIN
     Indication: Gallbladder cancer stage IV
     Dosage: UNK
     Route: 065
     Dates: start: 201905
  7. FLUOROURACIL [Suspect]
     Active Substance: FLUOROURACIL
     Indication: Gallbladder cancer stage IV
     Dosage: UNK
     Route: 065
     Dates: start: 201909, end: 202003
  8. FLUOROURACIL [Suspect]
     Active Substance: FLUOROURACIL
     Dosage: UNK
     Route: 065
     Dates: start: 202008

REACTIONS (1)
  - Disease progression [Unknown]
